FAERS Safety Report 10214636 (Version 1)
Quarter: 2014Q2

REPORT INFORMATION
  Report Type: Spontaneous
  Country: CA (occurrence: CA)
  Receive Date: 20140603
  Receipt Date: 20140603
  Transmission Date: 20141212
  Serious: Yes (Hospitalization)
  Sender: FDA-Public Use
  Company Number: CA-B.I. PHARMACEUTICALS,INC./RIDGEFIELD-2014-BI-23589CN

PATIENT
  Age: 52 Year
  Sex: Male

DRUGS (3)
  1. MICARDIS [Suspect]
     Indication: PRODUCT USED FOR UNKNOWN INDICATION
     Route: 048
  2. ACEBUTOLOL HYDROCHLORIDE [Concomitant]
     Route: 065
  3. CLONIDINE [Concomitant]
     Route: 065

REACTIONS (8)
  - Angina pectoris [Unknown]
  - Coronary artery disease [Unknown]
  - Electrocardiogram ST segment depression [Unknown]
  - Hypertension [Unknown]
  - Coronary artery occlusion [Unknown]
  - Myocardial infarction [Unknown]
  - Myocardial ischaemia [Unknown]
  - Chest pain [Unknown]
